FAERS Safety Report 11504352 (Version 2)
Quarter: 2015Q3

REPORT INFORMATION
  Report Type: Spontaneous
  Country: US (occurrence: US)
  Receive Date: 20150915
  Receipt Date: 20150929
  Transmission Date: 20151125
  Serious: Yes (Other)
  Sender: FDA-Public Use
  Company Number: US-ROCHE-1634124

PATIENT
  Sex: Female
  Weight: 72.64 kg

DRUGS (1)
  1. ESBRIET [Suspect]
     Active Substance: PIRFENIDONE
     Indication: IDIOPATHIC PULMONARY FIBROSIS
     Route: 048
     Dates: start: 20150617

REACTIONS (6)
  - Nausea [Recovered/Resolved]
  - Productive cough [Unknown]
  - Herpes zoster [Unknown]
  - Cough [Unknown]
  - Blister [Unknown]
  - Weight decreased [Recovered/Resolved]
